FAERS Safety Report 4576076-8 (Version None)
Quarter: 2005Q1

REPORT INFORMATION
  Report Type: 
  Country: None (occurrence: None)
  Receive Date: 20050201
  Receipt Date: 20050201
  Transmission Date: 20050727
  Serious: Yes (Hospitalization)
  Sender: FDA-Public Use
  Company Number: None

PATIENT
  Age: 58 Year
  Sex: Male
  Weight: 70.7611 kg

DRUGS (8)
  1. RISPERIDONE [Suspect]
     Indication: SCHIZOPHRENIA, PARANOID TYPE
     Dosage: 3 MG   DAILY    ORAL
     Route: 048
     Dates: start: 20041201, end: 20041208
  2. SEROQUEL [Concomitant]
  3. FLUPHENAZINE [Concomitant]
  4. BENZTROPINE MESYLATE [Concomitant]
  5. DEPAKOTE [Concomitant]
  6. ZOCOR [Concomitant]
  7. PROTONIX [Concomitant]
  8. ASPIRIN [Concomitant]

REACTIONS (2)
  - ERECTION INCREASED [None]
  - PAINFUL ERECTION [None]
